FAERS Safety Report 9325281 (Version 2)
Quarter: 2013Q4

REPORT INFORMATION
  Report Type: Report from Study
  Country: US (occurrence: US)
  Receive Date: 20130604
  Receipt Date: 20131022
  Transmission Date: 20140711
  Serious: Yes (Hospitalization, Disabling)
  Sender: FDA-Public Use
  Company Number: US-BIOGENIDEC-2013BI048145

PATIENT
  Age: 44 Year
  Sex: Female
  Weight: 77 kg

DRUGS (7)
  1. TYSABRI [Suspect]
     Indication: CROHN^S DISEASE
     Route: 042
     Dates: start: 20110527
  2. CALCIUM D3 [Concomitant]
     Route: 048
  3. EXCEDRIN [Concomitant]
     Indication: HEADACHE
     Route: 048
  4. ATIVAN [Concomitant]
     Route: 048
  5. MULTIVITAMIN [Concomitant]
     Route: 048
  6. ORTHO TRI CYCLEN [Concomitant]
     Route: 048
  7. VILAZODONE [Concomitant]
     Route: 048

REACTIONS (1)
  - Osteonecrosis [Recovered/Resolved]
